FAERS Safety Report 6055658-0 (Version None)
Quarter: 2009Q1

REPORT INFORMATION
  Report Type: 
  Country: None (occurrence: None)
  Receive Date: 20090123
  Receipt Date: 20090115
  Transmission Date: 20090719
  Serious: Yes (Other)
  Sender: FDA-Public Use
  Company Number: 2009-00151

PATIENT
  Age: 83 Year
  Sex: Female

DRUGS (3)
  1. VELCADE [Suspect]
     Indication: DRUG USE FOR UNKNOWN INDICATION
  2. REVLIMID [Suspect]
     Indication: MULTIPLE MYELOMA
     Dosage: 10 MG, ORAL
     Route: 048
     Dates: start: 20081007
  3. COUMADIN [Concomitant]

REACTIONS (4)
  - ERYTHEMA [None]
  - PLATELET COUNT DECREASED [None]
  - PRURITUS [None]
  - VAGINAL HAEMORRHAGE [None]
